FAERS Safety Report 18657661 (Version 1)
Quarter: 2020Q4

REPORT INFORMATION
  Report Type: Spontaneous
  Country: CA (occurrence: CA)
  Receive Date: 20201223
  Receipt Date: 20201223
  Transmission Date: 20210114
  Serious: Yes (Other)
  Sender: FDA-Public Use
  Company Number: NVSC2020CA336247

PATIENT
  Sex: Female

DRUGS (2)
  1. SANDOZ DORZOLAMIDE [Suspect]
     Active Substance: DORZOLAMIDE HYDROCHLORIDE
     Dosage: (3 DROPS), QD
     Route: 065
  2. SANDOZ DORZOLAMIDE [Suspect]
     Active Substance: DORZOLAMIDE HYDROCHLORIDE
     Indication: INTRAOCULAR PRESSURE INCREASED
     Dosage: 2 DROPS, QD
     Route: 065

REACTIONS (5)
  - Metabolic acidosis [Unknown]
  - Carbon dioxide decreased [Unknown]
  - Blood potassium increased [Unknown]
  - Blood pH increased [Unknown]
  - Intraocular pressure increased [Unknown]
